FAERS Safety Report 17289147 (Version 2)
Quarter: 2021Q2

REPORT INFORMATION
  Report Type: Spontaneous
  Country: US (occurrence: US)
  Receive Date: 20200120
  Receipt Date: 20210615
  Transmission Date: 20210716
  Serious: Yes (Other)
  Sender: FDA-Public Use
  Company Number: US-PFIZER INC-2020024935

PATIENT
  Age: 51 Year
  Sex: Male

DRUGS (2)
  1. XELJANZ [Suspect]
     Active Substance: TOFACITINIB CITRATE
     Dosage: 10 MG, UNK
  2. XELJANZ [Suspect]
     Active Substance: TOFACITINIB CITRATE
     Dosage: 2.5 MG (CUTTING 5MG IN HALF)

REACTIONS (5)
  - Rheumatoid arthritis [Unknown]
  - Colitis ulcerative [Unknown]
  - Osteoarthritis [Unknown]
  - Intentional product use issue [Unknown]
  - Renal failure [Unknown]
